FAERS Safety Report 8116470-1 (Version None)
Quarter: 2012Q1

REPORT INFORMATION
  Report Type: 
  Country: None (occurrence: None)
  Receive Date: 20120206
  Receipt Date: 20120127
  Transmission Date: 20120608
  Serious: Yes (Other)
  Sender: FDA-Public Use
  Company Number: US-NOVOPROD-343814

PATIENT
  Age: 57 Year
  Sex: Male
  Weight: 107.48 kg

DRUGS (1)
  1. VICTOZA [Suspect]
     Indication: TYPE 2 DIABETES MELLITUS
     Dosage: 1.8 MG, QD
     Route: 058
     Dates: start: 20110323, end: 20120101

REACTIONS (2)
  - WEIGHT DECREASED [None]
  - OESOPHAGEAL CARCINOMA [None]
